FAERS Safety Report 10575344 (Version 1)
Quarter: 2014Q4

REPORT INFORMATION
  Report Type: Spontaneous
  Country: US (occurrence: None)
  Receive Date: 20141107
  Receipt Date: 20141107
  Transmission Date: 20150529
  Serious: Yes (Hospitalization)
  Sender: FDA-Public Use
  Company Number: VAL_03571_2014

PATIENT
  Sex: Female

DRUGS (12)
  1. EPOETIN ALFA [Concomitant]
     Active Substance: ERYTHROPOIETIN
  2. NYSTATIN. [Concomitant]
     Active Substance: NYSTATIN
  3. FOLIC ACID. [Concomitant]
     Active Substance: FOLIC ACID
  4. CALCITRIOL. [Suspect]
     Active Substance: CALCITRIOL
     Indication: RENAL OSTEODYSTROPHY
     Route: 048
     Dates: start: 20120730
  5. FERROUS SULFATE [Concomitant]
     Active Substance: FERROUS SULFATE\FERROUS SULFATE, DRIED
  6. CITRIC ACID [Concomitant]
     Active Substance: CITRIC ACID MONOHYDRATE
  7. PRILOSEC [Concomitant]
     Active Substance: OMEPRAZOLE MAGNESIUM
  8. REGLAN [Concomitant]
     Active Substance: METOCLOPRAMIDE HYDROCHLORIDE
  9. LEVOXYL [Concomitant]
     Active Substance: LEVOTHYROXINE SODIUM
  10. CALCIUM GLUCONATE. [Concomitant]
     Active Substance: CALCIUM GLUCONATE
  11. ERYPED [Concomitant]
     Active Substance: ERYTHROMYCIN ETHYLSUCCINATE
  12. ERGOCALCIFEROL. [Concomitant]
     Active Substance: ERGOCALCIFEROL

REACTIONS (15)
  - Gastroenteritis [None]
  - Red blood cell count decreased [None]
  - Blood chloride decreased [None]
  - Dehydration [None]
  - Weight decreased [None]
  - Cough [None]
  - Retching [None]
  - Haematocrit decreased [None]
  - Nausea [None]
  - Hypotension [None]
  - Platelet count increased [None]
  - Blood urea increased [None]
  - Blood cholesterol increased [None]
  - Blood parathyroid hormone increased [None]
  - Iron binding capacity total decreased [None]
